FAERS Safety Report 6857157-2 (Version None)
Quarter: 2010Q3

REPORT INFORMATION
  Report Type: 
  Country: None (occurrence: None)
  Receive Date: 20100719
  Receipt Date: 20091116
  Transmission Date: 20110219
  Serious: No
  Sender: FDA-Public Use
  Company Number: US-KINGPHARMUSA00001-K200901445

PATIENT
  Sex: Female
  Weight: 81.633 kg

DRUGS (7)
  1. LEVOXYL [Suspect]
     Indication: HYPOTHYROIDISM
     Dosage: 137 MCG, QD
     Route: 048
     Dates: start: 20090201
  2. LEVOXYL [Suspect]
     Dosage: 1/2 OF 137 MCG, QD
     Route: 048
  3. LEVOXYL [Suspect]
     Dosage: 137 MCG, BIW
     Route: 048
  4. LEVOXYL [Suspect]
     Dosage: 112 MCG, QD
     Route: 048
  5. LEVOXYL [Suspect]
     Dosage: 88 MCG, QD
     Route: 048
  6. VITAMINS [Concomitant]
  7. DIURETICS [Concomitant]

REACTIONS (2)
  - ALOPECIA [None]
  - HYPERTHYROIDISM [None]
